FAERS Safety Report 9766041 (Version 1)
Quarter: 2013Q4

REPORT INFORMATION
  Report Type: Spontaneous
  Country: US (occurrence: US)
  Receive Date: 20131217
  Receipt Date: 20131217
  Transmission Date: 20140711
  Serious: No
  Sender: FDA-Public Use
  Company Number: US-GLAXOSMITHKLINE-A1016207A

PATIENT
  Sex: Female

DRUGS (1)
  1. VOTRIENT [Suspect]
     Indication: PRODUCT USED FOR UNKNOWN INDICATION
     Dosage: 800MG PER DAY
     Route: 048
     Dates: start: 20110901

REACTIONS (9)
  - Hepatic enzyme increased [Unknown]
  - Fatigue [Unknown]
  - Hair colour changes [Unknown]
  - Diarrhoea [Unknown]
  - Thyroid disorder [Unknown]
  - Disturbance in attention [Unknown]
  - Visual impairment [Unknown]
  - Middle insomnia [Unknown]
  - Burning sensation [Unknown]
